FAERS Safety Report 10071288 (Version 1)
Quarter: 2014Q2

REPORT INFORMATION
  Report Type: Spontaneous
  Country: IT (occurrence: IT)
  Receive Date: 20140410
  Receipt Date: 20140410
  Transmission Date: 20141212
  Serious: Yes (Other)
  Sender: FDA-Public Use
  Company Number: CHPA2014IT004981

PATIENT
  Age: 67 Year
  Sex: Female

DRUGS (1)
  1. BENEFIBER [Suspect]

REACTIONS (3)
  - Incoherent [Unknown]
  - Weight increased [Unknown]
  - Weight decreased [Unknown]
